FAERS Safety Report 9169540 (Version 2)
Quarter: 2013Q2

REPORT INFORMATION
  Report Type: Report from Study
  Country: CA (occurrence: CA)
  Receive Date: 20130318
  Receipt Date: 20130619
  Transmission Date: 20140414
  Serious: Yes (Hospitalization)
  Sender: FDA-Public Use
  Company Number: CA-ELI_LILLY_AND_COMPANY-CA201303003092

PATIENT
  Age: 61 Year
  Sex: Female

DRUGS (6)
  1. TERIPARATIDE [Suspect]
     Indication: OSTEOPOROSIS
     Dosage: 20 UG, QD
     Route: 058
     Dates: start: 20110707, end: 20130226
  2. TERIPARATIDE [Suspect]
     Dosage: 20 UG, QD
     Route: 058
     Dates: start: 20130307
  3. LOSEC [Concomitant]
     Dosage: UNK, UNKNOWN
     Route: 065
  4. MULTIVITAMIN [Concomitant]
     Dosage: UNK, UNKNOWN
     Route: 065
  5. ASA [Concomitant]
     Dosage: UNK, UNKNOWN
     Route: 065
  6. GABAPENTIN [Concomitant]
     Dosage: UNK, UNKNOWN
     Route: 065

REACTIONS (2)
  - Haemoglobin decreased [Not Recovered/Not Resolved]
  - Liver disorder [Not Recovered/Not Resolved]
